FAERS Safety Report 5007890-2 (Version None)
Quarter: 2006Q2

REPORT INFORMATION
  Report Type: 
  Country: None (occurrence: None)
  Receive Date: 20060522
  Receipt Date: 20060411
  Transmission Date: 20061013
  Serious: Yes (Other)
  Sender: FDA-Public Use
  Company Number: PHBS2006BR05435

PATIENT
  Age: 35 Year
  Sex: Female

DRUGS (3)
  1. RITALIN [Suspect]
     Indication: ATTENTION DEFICIT/HYPERACTIVITY DISORDER
     Dosage: 10 MG, QD
     Route: 048
     Dates: end: 20060101
  2. RITALIN [Suspect]
     Dosage: 10 MG, QD
     Route: 048
     Dates: start: 20030101, end: 20030101
  3. COPAXONE [Concomitant]
     Route: 042
     Dates: start: 19980101

REACTIONS (4)
  - ALOPECIA [None]
  - ANXIETY [None]
  - THYROID GLAND CANCER [None]
  - THYROIDECTOMY [None]
